FAERS Safety Report 5871982-6 (Version None)
Quarter: 2008Q3

REPORT INFORMATION
  Report Type: 
  Country: None (occurrence: None)
  Receive Date: 20080905
  Receipt Date: 20080825
  Transmission Date: 20090109
  Serious: Yes (Hospitalization)
  Sender: FDA-Public Use
  Company Number: PL-JNJFOC-20080901088

PATIENT
  Sex: Female
  Weight: 60 kg

DRUGS (8)
  1. TRAMAL [Suspect]
     Indication: RENAL COLIC
     Route: 065
  2. POLTRAM [Suspect]
     Indication: RENAL COLIC
     Route: 065
  3. ASCENTRA [Suspect]
     Indication: DEPRESSION
     Route: 065
  4. DIGOXIN [Concomitant]
  5. CAPTOPRIL [Concomitant]
  6. FUROSEMIDE [Concomitant]
  7. UROSEPT [Concomitant]
  8. NOLICIN [Concomitant]

REACTIONS (7)
  - ABDOMINAL PAIN [None]
  - CHILLS [None]
  - DIARRHOEA [None]
  - MUSCLE SPASMS [None]
  - NAUSEA [None]
  - PYREXIA [None]
  - VOMITING [None]
